FAERS Safety Report 4867175-1 (Version None)
Quarter: 2005Q4

REPORT INFORMATION
  Report Type: 
  Country: None (occurrence: None)
  Receive Date: 20051222
  Receipt Date: 20051213
  Transmission Date: 20060501
  Serious: Yes (Other)
  Sender: FDA-Public Use
  Company Number: 2005168659

PATIENT
  Sex: Male
  Weight: 90.7194 kg

DRUGS (3)
  1. LIPITOR [Suspect]
     Indication: MYOCARDIAL INFARCTION
     Dosage: (10 MG, UNKNOWN)
  2. ALLOPURINOL [Concomitant]
  3. SYNTHROID [Concomitant]

REACTIONS (6)
  - FATIGUE [None]
  - MUSCULAR WEAKNESS [None]
  - PROTEIN TOTAL INCREASED [None]
  - RENAL DISORDER [None]
  - THYROID DISORDER [None]
  - WEIGHT DECREASED [None]
